FAERS Safety Report 17572581 (Version 2)
Quarter: 2020Q1

REPORT INFORMATION
  Report Type: Spontaneous
  Country: NL (occurrence: SE)
  Receive Date: 20200323
  Receipt Date: 20200326
  Transmission Date: 20200409
  Serious: Yes (Other)
  Sender: FDA-Public Use
  Company Number: SE-FRESENIUS KABI-FK202002702

PATIENT
  Age: 60 Year
  Sex: Female

DRUGS (1)
  1. OXALIPLATIN (MANUFACTURER UNKNOWN) [Suspect]
     Active Substance: OXALIPLATIN
     Indication: COLON CANCER
     Dosage: UNK
     Route: 065

REACTIONS (14)
  - Gait disturbance [Unknown]
  - Peripheral coldness [Unknown]
  - Depression [Unknown]
  - Muscle spasms [Unknown]
  - Pain in extremity [Unknown]
  - Myocardial infarction [Unknown]
  - Abdominal infection [Unknown]
  - Anxiety [Unknown]
  - Nerve injury [Unknown]
  - Infection [Unknown]
  - Oedema peripheral [Unknown]
  - Suicide attempt [Unknown]
  - Post procedural infection [Unknown]
  - Abdominal pain upper [Unknown]
